FAERS Safety Report 13219628 (Version 2)
Quarter: 2017Q1

REPORT INFORMATION
  Report Type: Spontaneous
  Country: US (occurrence: US)
  Receive Date: 20170210
  Receipt Date: 20170217
  Transmission Date: 20170428
  Serious: Yes (Hospitalization)
  Sender: FDA-Public Use
  Company Number: US-B.I. PHARMACEUTICALS,INC./RIDGEFIELD-2017-BI-006744

PATIENT
  Sex: Male
  Weight: 65.32 kg

DRUGS (1)
  1. SPIRIVA [Suspect]
     Active Substance: TIOTROPIUM BROMIDE MONOHYDRATE
     Indication: CHRONIC OBSTRUCTIVE PULMONARY DISEASE
     Dosage: ADMINISTRATION CORRECT? NR (NOT REPORTED) ?ACTION(S) TAKEN WITH PRODUCT: NOT REPORTED
     Route: 055

REACTIONS (2)
  - Influenza [Unknown]
  - Dyspnoea [Unknown]
